FAERS Safety Report 16222458 (Version 4)
Quarter: 2021Q1

REPORT INFORMATION
  Report Type: Spontaneous
  Country: US (occurrence: US)
  Receive Date: 20190422
  Receipt Date: 20210108
  Transmission Date: 20210419
  Serious: Yes (Hospitalization, Other)
  Sender: FDA-Public Use
  Company Number: US-JNJFOC-20190412345

PATIENT
  Age: 42 Year
  Sex: Female

DRUGS (3)
  1. XARELTO [Suspect]
     Active Substance: RIVAROXABAN
     Indication: CEREBRAL VENOUS SINUS THROMBOSIS
  2. XARELTO [Suspect]
     Active Substance: RIVAROXABAN
     Indication: PULMONARY EMBOLISM
     Dosage: 15 MG TWICE DAILY FOR 21 DAYS THEN 20 MG ONCE DAILY
     Route: 048
     Dates: start: 20180820, end: 20180831
  3. XARELTO [Suspect]
     Active Substance: RIVAROXABAN
     Indication: DEEP VEIN THROMBOSIS

REACTIONS (4)
  - Cerebral venous sinus thrombosis [Recovered/Resolved]
  - Subdural haematoma [Recovering/Resolving]
  - Subarachnoid haemorrhage [Recovering/Resolving]
  - Drug ineffective [Unknown]

NARRATIVE: CASE EVENT DATE: 201808
